FAERS Safety Report 10009348 (Version 2)
Quarter: 2014Q1

REPORT INFORMATION
  Report Type: Spontaneous
  Country: US (occurrence: US)
  Receive Date: 20140313
  Receipt Date: 20140313
  Transmission Date: 20141002
  Serious: No
  Sender: FDA-Public Use
  Company Number: US-INCYTE CORPORATION-2012IN001212

PATIENT
  Age: 82 Year
  Sex: Male

DRUGS (14)
  1. JAKAFI [Suspect]
     Indication: MYELOFIBROSIS
     Dosage: 10 MG, BID
     Route: 048
  2. PROCARDIA XL [Concomitant]
     Dosage: 30 MG, QD
  3. ALLOPURINOL [Concomitant]
     Dosage: 300 MG, QD
  4. ATACAND [Concomitant]
     Dosage: 16 MG, QD
  5. AVODART [Concomitant]
     Dosage: 0.5 MG, QD
  6. FLOMAX [Concomitant]
     Dosage: 0.4 MG, QD
  7. ASPIRIN [Concomitant]
     Dosage: 81 MG, QD
  8. LIPITOR [Concomitant]
     Dosage: 10 MG, QD
  9. DIAZIDE [Concomitant]
     Dosage: 37.5/25 MG QD ON M, W, F
  10. PREDNISOLONE [Concomitant]
     Dosage: 1 GTT, QD, OS
     Route: 047
  11. XALATAN [Concomitant]
     Dosage: 1 GTT, QD, OD
     Route: 047
  12. TIMOLOL MALEATE [Concomitant]
     Dosage: 1 GTT, QD, OU
     Route: 047
  13. IRON [Concomitant]
     Indication: SUPPLEMENTATION THERAPY
     Dosage: UNK, QD
  14. VITAMIN C [Concomitant]
     Indication: SUPPLEMENTATION THERAPY
     Dosage: UNK, QD

REACTIONS (3)
  - Pain in extremity [Recovered/Resolved]
  - White blood cell count decreased [Not Recovered/Not Resolved]
  - Platelet count decreased [Recovered/Resolved]
